FAERS Safety Report 13413368 (Version 3)
Quarter: 2018Q1

REPORT INFORMATION
  Report Type: Spontaneous
  Country: US (occurrence: US)
  Receive Date: 20170406
  Receipt Date: 20180310
  Transmission Date: 20180508
  Serious: No
  Sender: FDA-Public Use
  Company Number: US-JNJFOC-20170312300

PATIENT
  Sex: Male

DRUGS (8)
  1. RISPERDAL [Suspect]
     Active Substance: RISPERIDONE
     Indication: SCHIZOPHRENIA
     Dosage: VARYING DOSE OF 2.0 MG TO 4.0 MG
     Route: 048
     Dates: start: 20080507, end: 20091002
  2. RISPERDAL [Suspect]
     Active Substance: RISPERIDONE
     Indication: AGITATION
     Dosage: VARYING DOSE OF 2.0 MG TO 4.0 MG
     Route: 048
     Dates: start: 20080507, end: 20090327
  3. RISPERDAL [Suspect]
     Active Substance: RISPERIDONE
     Indication: SCHIZOPHRENIA
     Route: 048
     Dates: start: 20080519
  4. RISPERDAL M-TAB [Suspect]
     Active Substance: RISPERIDONE
     Indication: SCHIZOPHRENIA
     Dosage: VARYING DOSE OF 2.0 MG, 3.0 MG TO 4.0 MG
     Route: 048
     Dates: start: 20081028, end: 20090915
  5. RISPERDAL [Suspect]
     Active Substance: RISPERIDONE
     Indication: SCHIZOPHRENIA
     Route: 048
     Dates: start: 20090908, end: 20090909
  6. RISPERDAL [Suspect]
     Active Substance: RISPERIDONE
     Indication: AGITATION
     Dosage: VARYING DOSE OF 2.0 MG TO 4.0 MG
     Route: 048
     Dates: start: 20080507, end: 20091002
  7. RISPERDAL CONSTA [Suspect]
     Active Substance: RISPERIDONE
     Indication: SCHIZOPHRENIA
     Dosage: VARYING DOSE OF 25 MG TO 37.5 MG
     Route: 030
     Dates: start: 20081111, end: 20090327
  8. RISPERDAL [Suspect]
     Active Substance: RISPERIDONE
     Indication: SCHIZOPHRENIA
     Dosage: VARYING DOSE OF 2.0 MG TO 4.0 MG
     Route: 048
     Dates: start: 20080507, end: 20090327

REACTIONS (2)
  - Gynaecomastia [Unknown]
  - Emotional distress [Unknown]
